FAERS Safety Report 8020613-8 (Version None)
Quarter: 2012Q1

REPORT INFORMATION
  Report Type: 
  Country: None (occurrence: None)
  Receive Date: 20120103
  Receipt Date: 20111222
  Transmission Date: 20120608
  Serious: Yes (Hospitalization, Other)
  Sender: FDA-Public Use
  Company Number: US-ASTRAZENECA-2011SE78091

PATIENT
  Age: 65 Year
  Sex: Female
  Weight: 77.1 kg

DRUGS (3)
  1. KLONOPIN [Concomitant]
  2. SEROQUEL [Suspect]
     Indication: BIPOLAR DISORDER
     Route: 048
     Dates: end: 20110101
  3. SEROQUEL [Suspect]
     Route: 048
     Dates: end: 20110101

REACTIONS (8)
  - DRUG DOSE OMISSION [None]
  - PHOBIA [None]
  - PERIPHERAL COLDNESS [None]
  - DYSPNOEA [None]
  - MENTAL DISORDER [None]
  - STAPHYLOCOCCAL INFECTION [None]
  - PNEUMONIA STAPHYLOCOCCAL [None]
  - FEELING ABNORMAL [None]
